FAERS Safety Report 25684395 (Version 1)
Quarter: 2025Q3

REPORT INFORMATION
  Report Type: Spontaneous
  Country: US (occurrence: US)
  Receive Date: 20250815
  Receipt Date: 20250815
  Transmission Date: 20251021
  Serious: No
  Sender: ROCHE
  Company Number: US-ROCHE-10000358729

PATIENT
  Sex: Female

DRUGS (22)
  1. XOLAIR [Suspect]
     Active Substance: OMALIZUMAB
     Indication: Idiopathic urticaria
     Dosage: STRENGTH: 300 MG/ 2 ML
     Route: 058
     Dates: start: 20250806
  2. NEURONTIN [Concomitant]
     Active Substance: GABAPENTIN
  3. PEPCID COMPL [Concomitant]
  4. PHENERGAN [Concomitant]
     Active Substance: PROMETHAZINE HYDROCHLORIDE
  5. PROCHLORPERA [Concomitant]
  6. PROVERA [Concomitant]
     Active Substance: MEDROXYPROGESTERONE ACETATE
  7. SEROQUEL XR [Concomitant]
     Active Substance: QUETIAPINE FUMARATE
  8. SODIUM CHLORIDE [Concomitant]
     Active Substance: SODIUM CHLORIDE
  9. VENTOLIN HFA [Concomitant]
     Active Substance: ALBUTEROL SULFATE
  10. VERAPAMIL HC [Concomitant]
  11. VOLTAREN [Concomitant]
     Active Substance: DICLOFENAC SODIUM
  12. ZYRTEC ALLER [Concomitant]
  13. MIDODRINE HC [Concomitant]
  14. METOPROLOL [Concomitant]
     Active Substance: METOPROLOL
  15. FLUCONAZOLE [Concomitant]
     Active Substance: FLUCONAZOLE
  16. EPIPEN JR [Concomitant]
     Active Substance: EPINEPHRINE
  17. BUSPIRONE HC [Concomitant]
  18. BELSOMRA [Concomitant]
     Active Substance: SUVOREXANT
  19. B12 [Concomitant]
  20. ALLEGRA ALLE [Concomitant]
  21. ATROVENT HFA [Concomitant]
     Active Substance: IPRATROPIUM BROMIDE
  22. ALBUTEROL [Concomitant]
     Active Substance: ALBUTEROL

REACTIONS (1)
  - Fatigue [Unknown]
